FAERS Safety Report 7634422-2 (Version None)
Quarter: 2011Q3

REPORT INFORMATION
  Report Type: 
  Country: None (occurrence: None)
  Receive Date: 20110725
  Receipt Date: 20110714
  Transmission Date: 20111222
  Serious: Yes (Hospitalization)
  Sender: FDA-Public Use
  Company Number: PHHY2011US56358

PATIENT
  Sex: Female

DRUGS (10)
  1. KLOR-CON [Concomitant]
  2. HYZAAR [Concomitant]
  3. NEXIUM [Concomitant]
  4. DARVOCET-N 50 [Concomitant]
  5. SYNTHROID [Concomitant]
  6. COMPAZINE [Concomitant]
     Indication: NAUSEA
  7. IMDUR [Concomitant]
  8. COREG [Concomitant]
  9. GLEEVEC [Suspect]
     Dosage: 400 MG, QD
  10. COLCHICINE [Concomitant]

REACTIONS (1)
  - MUSCLE ATROPHY [None]
